FAERS Safety Report 8859494 (Version 6)
Quarter: 2014Q3

REPORT INFORMATION
  Report Type: Spontaneous
  Country: JP (occurrence: JP)
  Receive Date: 20121024
  Receipt Date: 20140912
  Transmission Date: 20150326
  Serious: Yes (Hospitalization)
  Sender: FDA-Public Use
  Company Number: PHHY2012JP094638

PATIENT
  Age: 53 Year
  Weight: 77 kg

DRUGS (16)
  1. CLOZARIL [Suspect]
     Active Substance: CLOZAPINE
     Dosage: 75 MG, DAILY
     Route: 048
     Dates: start: 20120418, end: 20120424
  2. CLOZARIL [Suspect]
     Active Substance: CLOZAPINE
     Dosage: 75 MG, PER DAY
  3. CLOZARIL [Suspect]
     Active Substance: CLOZAPINE
     Dosage: 50 MG, DAILY
     Route: 048
     Dates: start: 20120415, end: 20120417
  4. EPADEL [Concomitant]
     Active Substance: ICOSAPENT
     Dosage: 1800 MG, UNK
     Route: 048
  5. CLOZARIL [Suspect]
     Active Substance: CLOZAPINE
     Dosage: 125 MG, DAILY
     Route: 048
     Dates: start: 20120502, end: 20120502
  6. ARIPIPRAZOLE [Suspect]
     Active Substance: ARIPIPRAZOLE
  7. CLOZARIL [Suspect]
     Active Substance: CLOZAPINE
     Dosage: 100 MG, DAILY
     Route: 048
     Dates: start: 20120425, end: 20120501
  8. CLOZARIL [Suspect]
     Active Substance: CLOZAPINE
     Dosage: 200 MG, DALIY
     Route: 048
     Dates: start: 20130424
  9. DORAL [Concomitant]
     Active Substance: QUAZEPAM
     Indication: SCHIZOPHRENIA, DISORGANISED TYPE
     Dosage: 20 MG, UNK
     Route: 048
     Dates: start: 20120411
  10. CLOZARIL [Suspect]
     Active Substance: CLOZAPINE
     Dosage: 100 MG, PER DAY
  11. NESINA [Concomitant]
     Active Substance: ALOGLIPTIN BENZOATE
     Dosage: 12.5 MG, QD
     Route: 048
     Dates: end: 20120918
  12. CLOZARIL [Suspect]
     Active Substance: CLOZAPINE
     Indication: SCHIZOPHRENIA, DISORGANISED TYPE
     Dosage: 12.5 MG, DAILY
     Route: 048
     Dates: start: 20120411, end: 20120411
  13. CLOZARIL [Suspect]
     Active Substance: CLOZAPINE
     Indication: SCHIZOPHRENIA
     Dosage: 25 MG, DAILY
     Route: 048
     Dates: start: 20120412, end: 20120414
  14. CLOZARIL [Suspect]
     Active Substance: CLOZAPINE
     Dosage: 100 MG, DAILY
     Route: 048
  15. CLOZARIL [Suspect]
     Active Substance: CLOZAPINE
     Dosage: 25 MG, PER WEEK
  16. URSODEOXYCHOLIC ACID [Concomitant]
     Active Substance: URSODIOL
     Dosage: 300 MG, UNK
     Route: 048

REACTIONS (10)
  - Glucose tolerance impaired [Recovered/Resolved]
  - Pyrexia [Recovered/Resolved]
  - Fatigue [Recovered/Resolved]
  - Psychiatric symptom [Unknown]
  - Hyperglycaemia [Recovered/Resolved]
  - Impaired insulin secretion [Unknown]
  - Language disorder [Unknown]
  - Infection [Unknown]
  - C-reactive protein increased [Recovered/Resolved]
  - Condition aggravated [Unknown]

NARRATIVE: CASE EVENT DATE: 20120427
